FAERS Safety Report 15725851 (Version 3)
Quarter: 2019Q1

REPORT INFORMATION
  Report Type: Report from Study
  Country: US (occurrence: US)
  Receive Date: 20181216
  Receipt Date: 20190202
  Transmission Date: 20190417
  Serious: No
  Sender: FDA-Public Use
  Company Number: PHEH2018US052113

PATIENT
  Sex: Female

DRUGS (1)
  1. AFINITOR DISPERZ [Suspect]
     Active Substance: EVEROLIMUS
     Indication: ASTROCYTOMA, LOW GRADE
     Dosage: 3 MG, QD
     Route: 048
     Dates: start: 20180118

REACTIONS (4)
  - Epistaxis [Unknown]
  - Scab [Unknown]
  - Dry skin [Unknown]
  - Contusion [Unknown]
